FAERS Safety Report 8179080-6 (Version None)
Quarter: 2012Q1

REPORT INFORMATION
  Report Type: 
  Country: None (occurrence: None)
  Receive Date: 20120302
  Receipt Date: 20120220
  Transmission Date: 20120608
  Serious: Yes (Other)
  Sender: FDA-Public Use
  Company Number: HR-RANBAXY-2012RR-52633

PATIENT
  Age: 74 Year
  Sex: Male

DRUGS (7)
  1. AMITRIPTYLINE HCL [Concomitant]
     Indication: PRODUCT USED FOR UNKNOWN INDICATION
     Dosage: 75 MG/DAY
     Route: 065
  2. AMITRIPTYLINE HCL [Concomitant]
     Dosage: 125 MG/DAY
     Route: 065
  3. ZOLPIDEM [Concomitant]
     Indication: PRODUCT USED FOR UNKNOWN INDICATION
     Dosage: 5 MG/DAY
     Route: 065
  4. DIAZEPAM [Concomitant]
     Indication: PRODUCT USED FOR UNKNOWN INDICATION
     Dosage: 20 MG/DAY
     Route: 065
  5. RISPERIDONE [Suspect]
     Indication: MAJOR DEPRESSION
     Dosage: 2 MG/DAY
     Route: 065
  6. AMITRIPTYLINE HCL [Concomitant]
     Indication: PROPHYLAXIS
     Dosage: 50 MG, UNK
     Route: 065
  7. RISPERIDONE [Concomitant]
     Dosage: 2 MG/DAY
     Route: 065

REACTIONS (4)
  - MAJOR DEPRESSION [None]
  - CONDITION AGGRAVATED [None]
  - PRODUCT SUBSTITUTION ISSUE [None]
  - DRUG INEFFECTIVE [None]
